FAERS Safety Report 4462040-6 (Version None)
Quarter: 2004Q3

REPORT INFORMATION
  Report Type: 
  Country: None (occurrence: None)
  Receive Date: 20040927
  Receipt Date: 20040927
  Transmission Date: 20050211
  Serious: Yes (Life-Threatening, Hospitalization)
  Sender: FDA-Public Use
  Company Number: None

PATIENT
  Sex: Female
  Weight: 70.3075 kg

DRUGS (1)
  1. TRIVORA-28 [Suspect]
     Indication: POST COITAL CONTRACEPTION
     Dosage: 2 TABS+ NOW AND EVENING ORAL
     Route: 048
     Dates: start: 20040819, end: 20040819

REACTIONS (2)
  - INFLUENZA LIKE ILLNESS [None]
  - STEVENS-JOHNSON SYNDROME [None]
